FAERS Safety Report 5606810-7 (Version None)
Quarter: 2008Q1

REPORT INFORMATION
  Report Type: 
  Country: None (occurrence: None)
  Receive Date: 20080129
  Receipt Date: 20080117
  Transmission Date: 20080703
  Serious: Yes (Hospitalization, Other)
  Sender: FDA-Public Use
  Company Number: BR-PFIZER INC-2008004925

PATIENT
  Sex: Female
  Weight: 44 kg

DRUGS (9)
  1. DEPO-PROVERA SUSPENSION/INJ [Suspect]
     Indication: CONTRACEPTION
     Dates: start: 20030601, end: 20030601
  2. DEPO-PROVERA SUSPENSION/INJ [Suspect]
     Indication: OFF LABEL USE
     Dates: start: 20060101, end: 20060101
  3. DEPO-PROVERA SUSPENSION/INJ [Suspect]
     Indication: MENSTRUAL DISCOMFORT
     Dates: start: 20071120, end: 20071120
  4. DEPO-PROVERA SUSPENSION/INJ [Suspect]
     Dates: start: 20080115, end: 20080115
  5. NPH INSULIN [Concomitant]
     Indication: DIABETES MELLITUS
     Route: 058
  6. METFORMIN HCL [Concomitant]
     Indication: DIABETES MELLITUS
     Route: 048
  7. SIMVASTATIN [Concomitant]
     Indication: HYPERCHOLESTEROLAEMIA
     Route: 048
  8. AMITRIPTYLINE HCL [Concomitant]
     Indication: DEPRESSION
     Route: 048
  9. CAPTOPRIL [Concomitant]
     Indication: HYPERTENSION
     Route: 048

REACTIONS (7)
  - ABORTION SPONTANEOUS [None]
  - BLOOD GLUCOSE DECREASED [None]
  - BLOOD PRESSURE INADEQUATELY CONTROLLED [None]
  - DRUG INEFFECTIVE [None]
  - PAPILLOMA VIRAL INFECTION [None]
  - PRURITUS GENERALISED [None]
  - UNINTENDED PREGNANCY [None]
